FAERS Safety Report 5241608-3 (Version None)
Quarter: 2007Q1

REPORT INFORMATION
  Report Type: 
  Country: None (occurrence: None)
  Receive Date: 20070215
  Receipt Date: 20070215
  Transmission Date: 20070707
  Serious: Yes (Other)
  Sender: FDA-Public Use
  Company Number: None

PATIENT
  Age: 60 Year
  Sex: Male
  Weight: 90.7194 kg

DRUGS (1)
  1. ZOLOFT [Suspect]
     Dosage: 50 MILLIGRAMS DAILY
     Dates: start: 20060820, end: 20070214

REACTIONS (4)
  - CONDITION AGGRAVATED [None]
  - DEPRESSED MOOD [None]
  - EMOTIONAL DISORDER [None]
  - TOBACCO ABUSE [None]
